FAERS Safety Report 12606478 (Version 1)
Quarter: 2016Q3

REPORT INFORMATION
  Report Type: Spontaneous
  Country: ES (occurrence: ES)
  Receive Date: 20160729
  Receipt Date: 20160729
  Transmission Date: 20161109
  Serious: Yes (Hospitalization)
  Sender: FDA-Public Use
  Company Number: ALCN2016ES005051

PATIENT
  Age: 2 Month
  Sex: Female
  Weight: 5.83 kg

DRUGS (1)
  1. COLIRCUSI GENTADEXA [Suspect]
     Active Substance: DEXAMETHASONE SODIUM PHOSPHATE\GENTAMICIN SULFATE\TETRAHYDROZOLINE HYDROCHLORIDE
     Indication: RHINITIS
     Dosage: 4 DROPS: 2 DROPS IN EACH NOSTRIL IN A ONCE/SINGLE DOSE
     Route: 045
     Dates: start: 20160415

REACTIONS (1)
  - Hypotonic-hyporesponsive episode [Recovered/Resolved]

NARRATIVE: CASE EVENT DATE: 20160415
